FAERS Safety Report 11987618 (Version 3)
Quarter: 2016Q2

REPORT INFORMATION
  Report Type: Report from Study
  Country: US (occurrence: US)
  Receive Date: 20160202
  Receipt Date: 20160429
  Transmission Date: 20160815
  Serious: No
  Sender: FDA-Public Use
  Company Number: PHEH2016US001692

PATIENT
  Sex: Male

DRUGS (1)
  1. COSENTYX [Suspect]
     Active Substance: SECUKINUMAB
     Indication: PSORIASIS
     Dosage: 300 MG, QMO
     Route: 058
     Dates: start: 20151209

REACTIONS (5)
  - Blister [Unknown]
  - Inappropriate schedule of drug administration [Unknown]
  - Hypokinesia [Unknown]
  - Blister rupture [Unknown]
  - Drug ineffective [Unknown]
